FAERS Safety Report 12067717 (Version 1)
Quarter: 2016Q1

REPORT INFORMATION
  Report Type: Spontaneous
  Country: US (occurrence: US)
  Receive Date: 20160211
  Receipt Date: 20160211
  Transmission Date: 20160526
  Serious: No
  Sender: FDA-Public Use
  Company Number: US-SMITH AND NEPHEW, INC-2014SMT00143

PATIENT
  Age: 72 Year
  Sex: Male
  Weight: 81.63 kg

DRUGS (10)
  1. REGRANEX [Suspect]
     Active Substance: BECAPLERMIN
     Indication: SKIN ULCER
     Dosage: UNK, 1X/DAY
     Route: 061
     Dates: start: 20141220
  2. DIGOXIN. [Concomitant]
     Active Substance: DIGOXIN
     Dosage: 250 ?G, 1X/DAY
  3. LASIX [Concomitant]
     Active Substance: FUROSEMIDE
     Dosage: 40 MG, 1X/DAY
  4. LASIX [Concomitant]
     Active Substance: FUROSEMIDE
     Dosage: 20 MG, 1X/DAY
  5. LOSARTAN. [Concomitant]
     Active Substance: LOSARTAN
     Dosage: 12.5 MG, 2X/DAY
  6. HUMALOG [Concomitant]
     Active Substance: INSULIN LISPRO
     Dosage: 14 U, UNK
  7. LIPITOR [Concomitant]
     Active Substance: ATORVASTATIN CALCIUM
     Dosage: 40 MG, 1X/DAY
  8. COUMADIN [Concomitant]
     Active Substance: WARFARIN SODIUM
     Dosage: 5 MG, UNK
  9. CARVEDILOL. [Concomitant]
     Active Substance: CARVEDILOL
     Dosage: 12.5 MG, 2X/DAY
  10. LANTUS [Concomitant]
     Active Substance: INSULIN GLARGINE
     Dosage: 37 U, 2X/DAY

REACTIONS (2)
  - Wound complication [Not Recovered/Not Resolved]
  - Application site pallor [Not Recovered/Not Resolved]

NARRATIVE: CASE EVENT DATE: 20141221
